FAERS Safety Report 10176559 (Version 1)
Quarter: 2014Q2

REPORT INFORMATION
  Report Type: Spontaneous
  Country: US (occurrence: None)
  Receive Date: 20140515
  Receipt Date: 20140515
  Transmission Date: 20141212
  Serious: No
  Sender: FDA-Public Use
  Company Number: None

PATIENT
  Age: 59 Year
  Sex: Female

DRUGS (1)
  1. ALPHAGAN P 0.1 % SOLUTION [Suspect]
     Indication: INTRAOCULAR PRESSURE INCREASED
     Dates: start: 20140426, end: 20140514

REACTIONS (9)
  - Drug hypersensitivity [None]
  - Dry eye [None]
  - Vision blurred [None]
  - Foreign body sensation in eyes [None]
  - Photosensitivity reaction [None]
  - Lacrimation increased [None]
  - Eye pain [None]
  - Eye discharge [None]
  - Headache [None]
